FAERS Safety Report 9645537 (Version 3)
Quarter: 2014Q2

REPORT INFORMATION
  Report Type: Spontaneous
  Country: CA (occurrence: CA)
  Receive Date: 20131025
  Receipt Date: 20140605
  Transmission Date: 20141212
  Serious: Yes (Disabling, Other)
  Sender: FDA-Public Use
  Company Number: CA-PFIZER INC-2013303469

PATIENT
  Age: 62 Year
  Sex: Male
  Weight: 70.75 kg

DRUGS (7)
  1. TECTA [Suspect]
     Indication: NAUSEA
     Dosage: 40 MG, 1X/DAY
     Route: 048
     Dates: start: 20130821, end: 20131012
  2. LIPITOR [Suspect]
     Indication: BLOOD CHOLESTEROL INCREASED
     Dosage: 10 MG, 1X/DAY
     Route: 065
     Dates: start: 20091116
  3. APO ATORVASTATIN [Concomitant]
     Dosage: 10 MG, UNK
  4. RAMIPRIL [Concomitant]
     Dosage: 2.5 MG, UNK
  5. PAXIL [Concomitant]
     Dosage: 20 MG, UNK
  6. DIAMICRON [Concomitant]
     Dosage: 30 MG, UNK
  7. OFLOXACIN [Concomitant]
     Dosage: UNK

REACTIONS (2)
  - Depression [Recovered/Resolved]
  - Suicidal ideation [Recovered/Resolved]
